FAERS Safety Report 21329891 (Version 2)
Quarter: 2022Q3

REPORT INFORMATION
  Report Type: Report from Study
  Country: US (occurrence: US)
  Receive Date: 20220913
  Receipt Date: 20220930
  Transmission Date: 20221026
  Serious: No
  Sender: FDA-Public Use
  Company Number: US-SA-SAC20220907000445

PATIENT
  Sex: Female

DRUGS (13)
  1. TERIFLUNOMIDE [Suspect]
     Active Substance: TERIFLUNOMIDE
     Indication: Product used for unknown indication
     Dosage: 14 MG, QD
     Route: 048
     Dates: start: 20220815
  2. MODAFINIL [Concomitant]
     Active Substance: MODAFINIL
  3. METAXALONE [Concomitant]
     Active Substance: METAXALONE
  4. OXYBUTYNIN [Concomitant]
     Active Substance: OXYBUTYNIN
  5. VALACYCLOVIR [Concomitant]
     Active Substance: VALACYCLOVIR HYDROCHLORIDE
  6. BUPROPION [Concomitant]
     Active Substance: BUPROPION
  7. PROLIA [Concomitant]
     Active Substance: DENOSUMAB
  8. CITALOPRAM [Concomitant]
     Active Substance: CITALOPRAM HYDROBROMIDE
  9. CALCIUM [Concomitant]
     Active Substance: CALCIUM
  10. CRANBERRY [Concomitant]
     Active Substance: CRANBERRY
  11. BIOTIN [Concomitant]
     Active Substance: BIOTIN
  12. VITAMIN D3 [Concomitant]
     Active Substance: CHOLECALCIFEROL
  13. CYANOCOBALAMIN [Concomitant]
     Active Substance: CYANOCOBALAMIN

REACTIONS (1)
  - Hypoaesthesia [Not Recovered/Not Resolved]
